FAERS Safety Report 4431678-4 (Version None)
Quarter: 2004Q3

REPORT INFORMATION
  Report Type: 
  Country: None (occurrence: None)
  Receive Date: 20040721
  Receipt Date: 20040428
  Transmission Date: 20050211
  Serious: Yes (Other)
  Sender: FDA-Public Use
  Company Number: 2004028986

PATIENT

DRUGS (1)
  1. RELPAX [Suspect]
     Indication: MIGRAINE
     Dosage: INTERVAL

REACTIONS (2)
  - DYSTONIA [None]
  - MUSCLE TIGHTNESS [None]
